FAERS Safety Report 15941725 (Version 1)
Quarter: 2019Q1

REPORT INFORMATION
  Report Type: Spontaneous
  Country: US (occurrence: US)
  Receive Date: 20190210
  Receipt Date: 20190210
  Transmission Date: 20190417
  Serious: Yes (Life-Threatening, Hospitalization)
  Sender: FDA-Public Use
  Company Number: None

PATIENT
  Age: 62 Year
  Sex: Female
  Weight: 64.8 kg

DRUGS (6)
  1. VALACYCLOVIR 1 GRAM 1 EVERY DAY BY MOUTH [Concomitant]
  2. CLOPIDOGREL [Suspect]
     Active Substance: CLOPIDOGREL BISULFATE
     Indication: CORONARY ARTERY DISEASE
     Dosage: ?          QUANTITY:1 TABLET(S);?
     Route: 048
     Dates: start: 20120101, end: 20190115
  3. BRILINTA 90 MG 1 TWICE A DAY BY MOUTH [Concomitant]
  4. REPATHA 140 MG/ML AUTOINJECTOR 1 EVERY 2 WEEKS [Concomitant]
  5. CRANBERRY 400 MG 1 VEGETARIAN CAPSULE A DAY [Concomitant]
  6. ASA 81 MG ENTERIC COATED ASA A DAY [Concomitant]

REACTIONS (3)
  - Thrombosis [None]
  - Myocardial infarction [None]
  - Atherosclerotic plaque rupture [None]

NARRATIVE: CASE EVENT DATE: 20190116
